FAERS Safety Report 4483521-5 (Version None)
Quarter: 2004Q4

REPORT INFORMATION
  Report Type: 
  Country: None (occurrence: None)
  Receive Date: 20041019
  Receipt Date: 20041019
  Transmission Date: 20050328
  Serious: Yes (Life-Threatening, Hospitalization)
  Sender: FDA-Public Use
  Company Number: None

PATIENT
  Age: 58 Year
  Sex: Female
  Weight: 59.4212 kg

DRUGS (2)
  1. VIOXX [Suspect]
     Indication: INFLAMMATION
     Dosage: 1 DAY ORAL
     Route: 048
     Dates: start: 20031211, end: 20040820
  2. VIOXX [Suspect]
     Indication: OSTEOARTHRITIS
     Dosage: 1 DAY ORAL
     Route: 048
     Dates: start: 20031211, end: 20040820

REACTIONS (1)
  - ULCER HAEMORRHAGE [None]
